FAERS Safety Report 23656635 (Version 2)
Quarter: 2024Q3

REPORT INFORMATION
  Report Type: Spontaneous
  Country: IT (occurrence: IT)
  Receive Date: 20240321
  Receipt Date: 20240828
  Transmission Date: 20241016
  Serious: Yes (Other)
  Sender: RANBAXY
  Company Number: IT-SUN PHARMACEUTICAL INDUSTRIES LTD-2024RR-437700

PATIENT
  Age: 71 Year
  Sex: Female

DRUGS (4)
  1. RILUZOLE [Suspect]
     Active Substance: RILUZOLE
     Indication: Motor neurone disease
     Dosage: 50 MILLIGRAM, BID, 1 TABLET MORNING AND EVENING
     Route: 048
     Dates: start: 20231021, end: 20231203
  2. VALDOXAN [Suspect]
     Active Substance: AGOMELATINE
     Indication: Depression
     Dosage: 25 MILLIGRAM, QD, 1 TABLET/DAY
     Route: 048
     Dates: start: 20231105, end: 20231203
  3. BISOPROLOL [Concomitant]
     Active Substance: BISOPROLOL\BISOPROLOL FUMARATE
     Indication: Hypertension
     Dosage: 10 MILLIGRAM, 1 TABLET PER DAY
     Route: 048
  4. HYDROCHLOROTHIAZIDE\OLMESARTAN MEDOXOMIL [Concomitant]
     Active Substance: HYDROCHLOROTHIAZIDE\OLMESARTAN MEDOXOMIL
     Indication: Hypertension
     Dosage: 1 DOSAGE FORM, 40/12.5MG, 1 TABLET/DAY.
     Route: 048

REACTIONS (1)
  - Hepatitis [Recovering/Resolving]

NARRATIVE: CASE EVENT DATE: 20231101
